FAERS Safety Report 9905079 (Version 1)
Quarter: 2013Q2

REPORT INFORMATION
  Report Type: Spontaneous
  Country: US (occurrence: None)
  Receive Date: 20130627
  Receipt Date: 20130627
  Transmission Date: 20140414
  Serious: No
  Sender: FDA-Public Use
  Company Number: 1000044714

PATIENT
  Sex: Female

DRUGS (2)
  1. LINZESS (LINACLOTIDE) (145 MICROGRAM, CAPSULES) [Suspect]
     Route: 048
  2. AMITIZA (LUBIPROSTONE) [Suspect]

REACTIONS (2)
  - Diarrhoea [None]
  - Constipation [None]
